FAERS Safety Report 7202021-2 (Version None)
Quarter: 2010Q4

REPORT INFORMATION
  Report Type: 
  Country: None (occurrence: None)
  Receive Date: 20101229
  Receipt Date: 20101221
  Transmission Date: 20110411
  Serious: Yes (Other)
  Sender: FDA-Public Use
  Company Number: CN-GENZYME-CERZ-1001617

PATIENT

DRUGS (5)
  1. CEREZYME [Suspect]
     Indication: GAUCHER'S DISEASE
     Dosage: 30 U/KG, Q4W
     Route: 042
     Dates: start: 20091101
  2. CEREZYME [Suspect]
     Dosage: 15 U/KG, Q2W
     Route: 042
     Dates: start: 20090801
  3. CEREZYME [Suspect]
     Dosage: 40 U/KG, Q2W
     Route: 042
     Dates: start: 20000816, end: 20090801
  4. VALPROATE SODIUM [Concomitant]
     Indication: PRODUCT USED FOR UNKNOWN INDICATION
     Dosage: UNK UNK, UNK
     Route: 065
  5. CARBAMAZEPINE [Concomitant]
     Indication: PRODUCT USED FOR UNKNOWN INDICATION
     Dosage: UNK UNK, UNK
     Route: 065

REACTIONS (2)
  - CONVULSION [None]
  - TREMOR [None]
